FAERS Safety Report 4586970-X (Version None)
Quarter: 2005Q1

REPORT INFORMATION
  Report Type: 
  Country: None (occurrence: None)
  Receive Date: 20050218
  Receipt Date: 20050214
  Transmission Date: 20050727
  Serious: Yes (Congenital Anomaly)
  Sender: FDA-Public Use
  Company Number: GB-MERCK-0502GBR00145B1

PATIENT

DRUGS (1)
  1. PROPECIA [Suspect]

REACTIONS (1)
  - CONGENITAL GENITAL MALFORMATION [None]
